FAERS Safety Report 22025334 (Version 1)
Quarter: 2023Q1

REPORT INFORMATION
  Report Type: Spontaneous
  Country: US (occurrence: None)
  Receive Date: 20230223
  Receipt Date: 20230223
  Transmission Date: 20230417
  Serious: No
  Sender: FDA-Public Use
  Company Number: US-ROCHE-3079982

PATIENT
  Age: 71 Year
  Sex: Female

DRUGS (9)
  1. XOLAIR [Suspect]
     Active Substance: OMALIZUMAB
     Indication: Product used for unknown indication
     Route: 065
     Dates: start: 202109
  2. PREDNISONE [Concomitant]
     Active Substance: PREDNISONE
     Dosage: 7 DAYS ONLY
  3. ZYRTEC [Concomitant]
     Active Substance: CETIRIZINE HYDROCHLORIDE
  4. QUINIDINE [Concomitant]
     Active Substance: QUINIDINE
  5. EPIPEN [Concomitant]
     Active Substance: EPINEPHRINE
     Dosage: AS NEEDED
  6. LASIX [Concomitant]
     Active Substance: FUROSEMIDE
  7. JANUVIA [Concomitant]
     Active Substance: SITAGLIPTIN PHOSPHATE
  8. SINGULARIS SUPERIOR ASHWAGANDHA FORTE [Concomitant]
  9. CRESTOR [Concomitant]
     Active Substance: ROSUVASTATIN CALCIUM
     Dosage: BEDTIME

REACTIONS (1)
  - Chest discomfort [Unknown]

NARRATIVE: CASE EVENT DATE: 20220101
